FAERS Safety Report 7290738-3 (Version None)
Quarter: 2011Q1

REPORT INFORMATION
  Report Type: 
  Country: None (occurrence: None)
  Receive Date: 20110214
  Receipt Date: 20110207
  Transmission Date: 20110831
  Serious: Yes (Life-Threatening, Hospitalization)
  Sender: FDA-Public Use
  Company Number: DE-ROCHE-732524

PATIENT
  Sex: Female
  Weight: 55 kg

DRUGS (5)
  1. PREDNISOLONE [Concomitant]
     Indication: RHEUMATOID ARTHRITIS
     Route: 048
     Dates: start: 20100901
  2. NOVALGIN [Concomitant]
     Dosage: DOSE:2 X 750-100 MG (2X 30-40 DROPS DAILY PER OS
     Route: 048
     Dates: start: 20100908, end: 20100928
  3. TOCILIZUMAB [Suspect]
     Indication: STILL'S DISEASE ADULT ONSET
     Dosage: 8 MG/KG
     Route: 042
     Dates: start: 20100929, end: 20100929
  4. KYTTA-KAVA [Concomitant]
     Indication: JOINT SWELLING
     Dosage: 2 X DAILY, 42 DOSE FORM, 1 DOSE FORM, 2, 1 DAY
     Route: 003
     Dates: start: 20100908, end: 20100928
  5. FE [Concomitant]
     Dosage: FE++

REACTIONS (3)
  - CHOLECYSTITIS [None]
  - HEPATITIS [None]
  - HEPATITIS ACUTE [None]
